FAERS Safety Report 6189026-8 (Version None)
Quarter: 2009Q2

REPORT INFORMATION
  Report Type: 
  Country: None (occurrence: None)
  Receive Date: 20090513
  Receipt Date: 20090506
  Transmission Date: 20091009
  Serious: Yes (Hospitalization)
  Sender: FDA-Public Use
  Company Number: US-ELI_LILLY_AND_COMPANY-US200905001092

PATIENT
  Sex: Female

DRUGS (2)
  1. BYETTA [Suspect]
     Indication: TYPE 2 DIABETES MELLITUS
     Dosage: UNK, UNKNOWN
     Dates: start: 20090101, end: 20090101
  2. BYETTA [Suspect]
     Dosage: UNK, UNKNOWN
     Dates: start: 20090401

REACTIONS (5)
  - CATARACT [None]
  - LOCALISED INFECTION [None]
  - PNEUMONIA [None]
  - RASH ERYTHEMATOUS [None]
  - WEIGHT DECREASED [None]
